FAERS Safety Report 21010612 (Version 6)
Quarter: 2022Q4

REPORT INFORMATION
  Report Type: Spontaneous
  Country: IN (occurrence: IN)
  Receive Date: 20220627
  Receipt Date: 20221128
  Transmission Date: 20230112
  Serious: Yes (Other)
  Sender: FDA-Public Use
  Company Number: IN-PFIZER INC-PV202200007066

PATIENT
  Age: 49 Year
  Sex: Male

DRUGS (2)
  1. CRIZOTINIB [Suspect]
     Active Substance: CRIZOTINIB
     Dosage: 250 MG, 2X/DAY
     Route: 048
     Dates: start: 202111
  2. PANTOPRAZOLE [Concomitant]
     Active Substance: PANTOPRAZOLE
     Dosage: 40 MG, 1X/DAY (X 1 MONTH)

REACTIONS (5)
  - Blood pressure systolic increased [Unknown]
  - Neoplasm progression [Unknown]
  - Product dose omission issue [Unknown]
  - Blood pressure diastolic increased [Unknown]
  - Mean arterial pressure increased [Unknown]

NARRATIVE: CASE EVENT DATE: 20220614
